FAERS Safety Report 7104584-4 (Version None)
Quarter: 2010Q4

REPORT INFORMATION
  Report Type: 
  Country: None (occurrence: None)
  Receive Date: 20101109
  Receipt Date: 20101029
  Transmission Date: 20110411
  Serious: Yes (Other)
  Sender: FDA-Public Use
  Company Number: US-1183933

PATIENT
  Sex: Female

DRUGS (1)
  1. NEOMYCIN AND POLYMXIN B SULFATES AND HYDROCORTISONE [Suspect]
     Indication: EYE PAIN
     Dosage: (OPHTHALMIC)
     Route: 047
     Dates: start: 20101028

REACTIONS (4)
  - DRUG DISPENSING ERROR [None]
  - EYE BURNS [None]
  - EYE PAIN [None]
  - OFF LABEL USE [None]
